FAERS Safety Report 7157700-2 (Version None)
Quarter: 2010Q4

REPORT INFORMATION
  Report Type: 
  Country: None (occurrence: None)
  Receive Date: 20101214
  Receipt Date: 20100316
  Transmission Date: 20110411
  Serious: No
  Sender: FDA-Public Use
  Company Number: US-ASTRAZENECA-2010SE11731

PATIENT
  Age: 11622 Day
  Sex: Female
  Weight: 88.5 kg

DRUGS (9)
  1. CRESTOR [Suspect]
     Indication: BLOOD CHOLESTEROL INCREASED
     Route: 048
     Dates: start: 20100316
  2. OMEPRAZOLE [Concomitant]
     Indication: GASTROOESOPHAGEAL REFLUX DISEASE
     Route: 048
  3. ATENOLOL [Concomitant]
     Indication: HYPERTENSION
     Route: 048
  4. CLONAZEPAM [Concomitant]
     Indication: BIPOLAR DISORDER
     Route: 048
  5. FERROUS SULFATE [Concomitant]
     Indication: ANAEMIA
     Route: 048
  6. KLOR-CON [Concomitant]
     Indication: HYPERTENSION
     Route: 048
  7. LASIX [Concomitant]
     Indication: HYPERTENSION
     Route: 048
  8. METFORMIN [Concomitant]
     Indication: DIABETES MELLITUS
     Route: 048
  9. WELLBUTRIN SR [Concomitant]
     Indication: DEPRESSION
     Route: 048

REACTIONS (5)
  - ABDOMINAL DISTENSION [None]
  - DYSPNOEA [None]
  - HEADACHE [None]
  - HYPERHIDROSIS [None]
  - NAUSEA [None]
